FAERS Safety Report 7364611-6 (Version None)
Quarter: 2011Q1

REPORT INFORMATION
  Report Type: 
  Country: None (occurrence: None)
  Receive Date: 20110321
  Receipt Date: 20110307
  Transmission Date: 20110831
  Serious: Yes (Death, Hospitalization)
  Sender: FDA-Public Use
  Company Number: FR-GENENTECH-307462

PATIENT

DRUGS (1)
  1. RITUXIMAB [Suspect]
     Indication: RHEUMATOID ARTHRITIS
     Route: 042

REACTIONS (11)
  - INFECTION [None]
  - ARTHRITIS INFECTIVE [None]
  - BRONCHOPNEUMONIA [None]
  - URINARY TRACT INFECTION [None]
  - GASTROINTESTINAL INFECTION [None]
  - PHARYNGITIS [None]
  - ARTHRITIS FUNGAL [None]
  - RHINITIS [None]
  - EYE INFECTION [None]
  - SEPSIS [None]
  - SKIN INFECTION [None]
